FAERS Safety Report 23439941 (Version 1)
Quarter: 2024Q1

REPORT INFORMATION
  Report Type: Spontaneous
  Country: GB (occurrence: GB)
  Receive Date: 20240124
  Receipt Date: 20240124
  Transmission Date: 20240410
  Serious: Yes (Other)
  Sender: FDA-Public Use
  Company Number: None

PATIENT
  Age: 69 Year
  Sex: Female
  Weight: 50 kg

DRUGS (2)
  1. IBRANCE [Suspect]
     Active Substance: PALBOCICLIB
     Indication: Breast cancer
     Dosage: 125 MG ONCE A DAY 3WEEKS ON, ONE WEEK OFF
     Dates: end: 20230923
  2. RIVAROXABAN [Concomitant]
     Active Substance: RIVAROXABAN
     Indication: Breast cancer
     Dosage: 10 MG, 1X/DAY

REACTIONS (3)
  - Peripheral swelling [Recovered/Resolved with Sequelae]
  - Joint swelling [Unknown]
  - Erythema [Unknown]

NARRATIVE: CASE EVENT DATE: 20230924
